FAERS Safety Report 11242523 (Version 5)
Quarter: 2016Q1

REPORT INFORMATION
  Report Type: Report from Study
  Country: US (occurrence: US)
  Receive Date: 20150707
  Receipt Date: 20160303
  Transmission Date: 20160525
  Serious: Yes (Other)
  Sender: FDA-Public Use
  Company Number: US-AMGEN-USASP2015065956

PATIENT
  Age: 58 Year
  Sex: Female

DRUGS (3)
  1. ENBREL [Suspect]
     Active Substance: ETANERCEPT
     Dosage: 50 MG, QWK
     Route: 065
     Dates: start: 201512
  2. ENBREL [Suspect]
     Active Substance: ETANERCEPT
     Indication: RHEUMATOID ARTHRITIS
     Dosage: 50 MG, QWK ON MONDAY
     Route: 065
     Dates: start: 2015, end: 2015
  3. PLAQUENIL [Concomitant]
     Active Substance: HYDROXYCHLOROQUINE SULFATE
     Dosage: UNK

REACTIONS (17)
  - Adverse event [Recovering/Resolving]
  - Breath odour [Unknown]
  - Hypoglycaemia [Unknown]
  - Laryngitis [Recovering/Resolving]
  - Arthralgia [Unknown]
  - Malaise [Recovering/Resolving]
  - Therapeutic response unexpected [Unknown]
  - Sinusitis [Recovering/Resolving]
  - Bronchitis [Recovering/Resolving]
  - Sjogren^s syndrome [Not Recovered/Not Resolved]
  - Nail discolouration [Unknown]
  - Aphonia [Unknown]
  - Cough [Recovering/Resolving]
  - Hair texture abnormal [Unknown]
  - Pharyngitis [Recovering/Resolving]
  - Confusional state [Unknown]
  - Nervousness [Unknown]

NARRATIVE: CASE EVENT DATE: 2015
